FAERS Safety Report 26003054 (Version 1)
Quarter: 2025Q4

REPORT INFORMATION
  Report Type: Spontaneous
  Country: US (occurrence: US)
  Receive Date: 20251106
  Receipt Date: 20251106
  Transmission Date: 20260117
  Serious: No
  Sender: SANOFI AVENTIS
  Company Number: US-SA-2025SA321933

PATIENT
  Age: 64 Year
  Sex: Male

DRUGS (11)
  1. DUPIXENT [Suspect]
     Active Substance: DUPILUMAB
     Indication: Emphysema
     Dosage: 300 MG, QOW
     Route: 058
     Dates: start: 20250816
  2. ALBUTEROL SULFATE [Concomitant]
     Active Substance: ALBUTEROL SULFATE
  3. ALENDRONATE [Concomitant]
     Active Substance: ALENDRONATE SODIUM
  4. AMITRIPTYLINE [Concomitant]
     Active Substance: AMITRIPTYLINE
  5. ANORO ELLIPTA [Concomitant]
     Active Substance: UMECLIDINIUM BROMIDE\VILANTEROL TRIFENATATE
  6. ASPIRIN [Concomitant]
     Active Substance: ASPIRIN
  7. ATORVASTATIN [Concomitant]
     Active Substance: ATORVASTATIN
  8. AZITHROMYCIN [Concomitant]
     Active Substance: AZITHROMYCIN
  9. CARVEDILOL [Concomitant]
     Active Substance: CARVEDILOL
  10. CARVEDILOL [Concomitant]
     Active Substance: CARVEDILOL
  11. DEXAMETHASONE [Concomitant]
     Active Substance: DEXAMETHASONE

REACTIONS (5)
  - Dyspnoea [Not Recovered/Not Resolved]
  - Viral infection [Unknown]
  - Rash [Unknown]
  - Drug ineffective [Unknown]
  - Product use in unapproved indication [Unknown]

NARRATIVE: CASE EVENT DATE: 20250101
